FAERS Safety Report 8327744-3 (Version None)
Quarter: 2012Q2

REPORT INFORMATION
  Report Type: 
  Country: None (occurrence: None)
  Receive Date: 20120502
  Receipt Date: 20120424
  Transmission Date: 20120825
  Serious: No
  Sender: FDA-Public Use
  Company Number: US-PFIZER INC-2012055097

PATIENT
  Sex: Female

DRUGS (1)
  1. EFFEXOR XR [Suspect]
     Indication: DEPRESSION
     Dosage: 150
     Route: 048

REACTIONS (5)
  - WITHDRAWAL SYNDROME [None]
  - CRYING [None]
  - MALAISE [None]
  - MOOD SWINGS [None]
  - FEELING ABNORMAL [None]
